FAERS Safety Report 7017826 (Version 2)
Quarter: 2013Q1

REPORT INFORMATION
  Report Type: Spontaneous
  Country: ES (occurrence: ES)
  Receive Date: 20090611
  Receipt Date: 20130309
  Transmission Date: 20140127
  Serious: Yes (Death, Hospitalization, Other)
  Sender: FDA-Public Use
  Company Number: ES-ELI_LILLY_AND_COMPANY-ES200906000291

PATIENT
  Age: 79 Year
  Sex: Female

DRUGS (9)
  1. FORSTEO [Suspect]
     Indication: OSTEOPOROSIS
     Dosage: 20 MG, UNKNOWN
     Route: 058
     Dates: start: 200808
  2. SIMVASTATIN [Concomitant]
     Dosage: 20 MG, EACH EVENING
     Route: 065
  3. SINTRON [Concomitant]
     Dosage: UNK, EACH EVENING
     Route: 065
  4. ORFIDAL [Concomitant]
     Dosage: UNK, EACH EVENING
     Route: 065
  5. ENALAPRIL [Concomitant]
     Dosage: 5 MG, EACH EVENING
     Route: 065
  6. OMEPRAZOL [Concomitant]
     Dosage: 20 MG, EACH MORNING
     Route: 065
  7. SEGURIL [Concomitant]
     Dosage: UNK, EACH MORNING
     Route: 065
  8. PLAVIX [Concomitant]
     Dosage: 75 G, DAILY (1/D) (AT LUNCH)
  9. ADIRO [Concomitant]
     Dosage: UNK, UNKNOWN (AT LUNCH)
     Route: 065

REACTIONS (8)
  - Arrhythmia [Fatal]
  - Myocardial infarction [Recovered/Resolved]
  - Fall [Unknown]
  - Skull fracture [Not Recovered/Not Resolved]
  - Inflammation [Unknown]
  - Suicidal ideation [Unknown]
  - Weight decreased [Unknown]
  - Depressed mood [Unknown]
